FAERS Safety Report 12404361 (Version 2)
Quarter: 2016Q3

REPORT INFORMATION
  Report Type: Report from Study
  Country: DE (occurrence: DE)
  Receive Date: 20160525
  Receipt Date: 20160711
  Transmission Date: 20161109
  Serious: Yes (Hospitalization)
  Sender: FDA-Public Use
  Company Number: DE-PFIZER INC-2015096822

PATIENT
  Age: 74 Year
  Sex: Male

DRUGS (6)
  1. TOREM /01036501/ [Concomitant]
     Active Substance: TORSEMIDE
     Indication: OEDEMA
     Dosage: 10 MG, 1X/DAY
     Route: 048
     Dates: start: 20141014
  2. CIPROFLOXACIN. [Concomitant]
     Active Substance: CIPROFLOXACIN
     Indication: PROPHYLAXIS
     Dosage: 500 MG, 2X/DAY (1-0-1)
     Route: 048
     Dates: start: 20150930
  3. PIOGLITAZONE. [Suspect]
     Active Substance: PIOGLITAZONE
     Indication: METASTATIC MALIGNANT MELANOMA
     Dosage: 45 MG, UNK
     Route: 048
     Dates: start: 20140909
  4. TEMSIROLIMUS [Suspect]
     Active Substance: TEMSIROLIMUS
     Indication: METASTATIC MALIGNANT MELANOMA
     Dosage: 25 MG, UNK
     Route: 042
     Dates: start: 20140909, end: 20150310
  5. IXOTEN [Suspect]
     Active Substance: TROFOSFAMIDE
     Indication: METASTATIC MALIGNANT MELANOMA
     Dosage: 150 MG, DAILY
     Route: 048
     Dates: start: 20140909
  6. ETORICOXIB [Suspect]
     Active Substance: ETORICOXIB
     Indication: METASTATIC MALIGNANT MELANOMA
     Dosage: 30 MG, UNK
     Route: 048
     Dates: start: 20140909

REACTIONS (1)
  - Multiple fractures [Recovered/Resolved]

NARRATIVE: CASE EVENT DATE: 20150313
